FAERS Safety Report 12163493 (Version 1)
Quarter: 2016Q1

REPORT INFORMATION
  Report Type: Spontaneous
  Country: US (occurrence: None)
  Receive Date: 20160308
  Receipt Date: 20160308
  Transmission Date: 20160526
  Serious: Yes (Hospitalization)
  Sender: FDA-Public Use
  Company Number: None

PATIENT
  Age: 46 Year
  Sex: Male
  Weight: 87.8 kg

DRUGS (11)
  1. ASPIRIN. [Concomitant]
     Active Substance: ASPIRIN
  2. OXALIPLATIN. [Suspect]
     Active Substance: OXALIPLATIN
     Route: 042
     Dates: start: 20160303
  3. TRAMADOL. [Concomitant]
     Active Substance: TRAMADOL
  4. AFLIBERCEPT [Suspect]
     Active Substance: AFLIBERCEPT
     Route: 042
     Dates: start: 20160303
  5. LEUCOVORIN. [Suspect]
     Active Substance: LEUCOVORIN
     Indication: NEOPLASM MALIGNANT
     Dosage: 2XMONTH
     Route: 042
     Dates: start: 20160303
  6. PROCHLORPERAZINE. [Concomitant]
     Active Substance: PROCHLORPERAZINE
  7. 5-FU BOLUS [Suspect]
     Active Substance: FLUOROURACIL
     Indication: RECTAL CANCER
     Dosage: 2XMONTH, IV CONTINUOUS IV
     Route: 042
     Dates: start: 20160303
  8. LISINOPRIL. [Concomitant]
     Active Substance: LISINOPRIL
  9. LORAZEPAM. [Concomitant]
     Active Substance: LORAZEPAM
  10. LOVASTATIN. [Concomitant]
     Active Substance: LOVASTATIN
  11. LIDOCAINE-PRILOCAINE [Concomitant]
     Active Substance: LIDOCAINE\PRILOCAINE

REACTIONS (5)
  - Constipation [None]
  - Pain [None]
  - Pain in extremity [None]
  - Urinary retention [None]
  - Arthralgia [None]

NARRATIVE: CASE EVENT DATE: 20160305
